FAERS Safety Report 16617072 (Version 2)
Quarter: 2020Q1

REPORT INFORMATION
  Report Type: Spontaneous
  Country: US (occurrence: US)
  Receive Date: 20190723
  Receipt Date: 20200128
  Transmission Date: 20200409
  Serious: Yes (Hospitalization)
  Sender: FDA-Public Use
  Company Number: US-GW PHARMA-201907USGW2476

PATIENT

DRUGS (4)
  1. EPIDIOLEX [Suspect]
     Active Substance: CANNABIDIOL
     Indication: LENNOX-GASTAUT SYNDROME
     Dosage: 180 MILLIGRAM, BID
     Route: 048
     Dates: start: 20190623, end: 20190626
  2. EPIDIOLEX [Suspect]
     Active Substance: CANNABIDIOL
     Dosage: REACHING GOAL DOSE
     Route: 048
     Dates: start: 20190627, end: 20190708
  3. PROCRIT [Concomitant]
     Active Substance: ERYTHROPOIETIN
     Indication: ANAEMIA OF CHRONIC DISEASE
     Dosage: UNKNOWN
     Route: 065
  4. PROCRIT [Concomitant]
     Active Substance: ERYTHROPOIETIN
     Indication: END STAGE RENAL DISEASE

REACTIONS (3)
  - Erythema annulare [Unknown]
  - Drug eruption [Unknown]
  - Seizure [Unknown]

NARRATIVE: CASE EVENT DATE: 201907
